FAERS Safety Report 5912342-9 (Version None)
Quarter: 2008Q4

REPORT INFORMATION
  Report Type: 
  Country: None (occurrence: None)
  Receive Date: 20081008
  Receipt Date: 20081003
  Transmission Date: 20090506
  Serious: Yes (Disabling, Other)
  Sender: FDA-Public Use
  Company Number: FI-WYE-G02274008

PATIENT
  Age: 50 Year
  Sex: Female

DRUGS (4)
  1. EFFEXOR [Suspect]
     Indication: DEPRESSION
     Route: 048
     Dates: start: 20080801
  2. EFFEXOR [Suspect]
     Route: 048
     Dates: start: 20060101, end: 20080801
  3. SIMVASTATIN [Concomitant]
     Dosage: UNSPECIFIED
  4. MICARDIS [Concomitant]
     Dosage: UNSPECIFIED

REACTIONS (1)
  - VOCAL CORD PARALYSIS [None]
